FAERS Safety Report 25887412 (Version 1)
Quarter: 2025Q4

REPORT INFORMATION
  Report Type: Report from Study
  Country: RU (occurrence: RU)
  Receive Date: 20251006
  Receipt Date: 20251006
  Transmission Date: 20260117
  Serious: Yes (Death)
  Sender: ABBVIE
  Company Number: RU-JNJFOC-20250948107

PATIENT
  Age: 56 Year
  Sex: Female

DRUGS (1)
  1. IMBRUVICA [Suspect]
     Active Substance: IBRUTINIB
     Indication: Chronic lymphocytic leukaemia
     Dosage: DOSE FORM UNKNOWN
     Route: 048

REACTIONS (3)
  - Death [Fatal]
  - Dyspepsia [Unknown]
  - Diarrhoea [Unknown]
